FAERS Safety Report 16532408 (Version 1)
Quarter: 2019Q3

REPORT INFORMATION
  Report Type: Spontaneous
  Country: CN (occurrence: CN)
  Receive Date: 20190705
  Receipt Date: 20190705
  Transmission Date: 20191004
  Serious: Yes (Other)
  Sender: FDA-Public Use
  Company Number: CN-009507513-1906CHN011170

PATIENT
  Age: 84 Year
  Sex: Male

DRUGS (2)
  1. TIENAM [Suspect]
     Active Substance: CILASTATIN SODIUM\IMIPENEM
     Indication: PNEUMONIA
     Dosage: 500 MILLIGRAM, TID
     Dates: start: 20190603, end: 20190610
  2. SODIUM CHLORIDE. [Concomitant]
     Active Substance: SODIUM CHLORIDE
     Dosage: 50 MILLILITER, TID
     Dates: start: 20190603, end: 20190610

REACTIONS (3)
  - Hallucination [Unknown]
  - Cardiac failure [Unknown]
  - Logorrhoea [Unknown]

NARRATIVE: CASE EVENT DATE: 201906
